FAERS Safety Report 7511854-4 (Version None)
Quarter: 2011Q2

REPORT INFORMATION
  Report Type: 
  Country: None (occurrence: None)
  Receive Date: 20110531
  Receipt Date: 20110525
  Transmission Date: 20111010
  Serious: Yes (Other)
  Sender: FDA-Public Use
  Company Number: GB-PFIZER INC-2011113732

PATIENT
  Age: 83 Year
  Sex: Male

DRUGS (3)
  1. AMLODIPINE BESILATE [Suspect]
     Dosage: 5 MG, UNK
     Route: 048
     Dates: start: 20100902, end: 20100916
  2. AMLODIPINE BESILATE [Suspect]
     Dosage: 5 MG, UNK
     Route: 048
     Dates: end: 20101210
  3. AMLODIPINE BESILATE [Suspect]
     Dosage: 10 MG, 1X/DAY
     Route: 048
     Dates: start: 20100916, end: 20101129

REACTIONS (2)
  - OEDEMA PERIPHERAL [None]
  - URETHRAL STENOSIS [None]
